FAERS Safety Report 20726834 (Version 1)
Quarter: 2022Q2

REPORT INFORMATION
  Report Type: Report from Study
  Country: US (occurrence: US)
  Receive Date: 20220419
  Receipt Date: 20220419
  Transmission Date: 20220721
  Serious: Yes (Other)
  Sender: FDA-Public Use
  Company Number: US-JAZZ-2022-US-001717

PATIENT
  Sex: Female

DRUGS (3)
  1. XYWAV [Suspect]
     Active Substance: CALCIUM OXYBATE\MAGNESIUM OXYBATE\POTASSIUM OXYBATE\SODIUM OXYBATE
     Indication: Narcolepsy
     Dosage: 4.5 GRAM, BID
     Route: 048
     Dates: start: 202011
  2. MAGNESIUM GLUCONATE [Concomitant]
     Active Substance: MAGNESIUM GLUCONATE
     Indication: Product used for unknown indication
     Dosage: 0000
     Dates: start: 20210901
  3. VITAMIN B2 [Concomitant]
     Active Substance: RIBOFLAVIN
     Indication: Product used for unknown indication
     Dosage: 0000
     Dates: start: 20210901

REACTIONS (10)
  - Macular degeneration [Unknown]
  - Carpal tunnel syndrome [Unknown]
  - Trigger finger [Unknown]
  - Obsessive-compulsive disorder [Recovered/Resolved]
  - Stress [Unknown]
  - Ulcer [Unknown]
  - Inflammation [Unknown]
  - Panic attack [Unknown]
  - Headache [Unknown]
  - Anxiety [Unknown]
